FAERS Safety Report 7012724 (Version 2)
Quarter: 2014Q3

REPORT INFORMATION
  Report Type: Spontaneous
  Country: US (occurrence: None)
  Receive Date: 20090526
  Receipt Date: 20140804
  Transmission Date: 20150326
  Serious: Yes (Other)
  Sender: FDA-Public Use
  Company Number: 2009S1004077

PATIENT
  Sex: Female

DRUGS (9)
  1. AVAPRO [Concomitant]
     Active Substance: IRBESARTAN
  2. ZOCOR [Concomitant]
     Active Substance: SIMVASTATIN
  3. LEVOTHROID (LEVOTHYROXINE SODIUM) [Concomitant]
  4. ALLEGRA (FEXOFENADINE HYDROCHLORIDE) [Concomitant]
  5. PHOSPHO-SODA [Suspect]
     Active Substance: SODIUM PHOSPHATE, DIBASIC\SODIUM PHOSPHATE, MONOBASIC
     Indication: COLONOSCOPY
     Dosage: PO
     Route: 048
     Dates: start: 20030724
  6. DILACOR (VERAPAMIL HYDROCHLORIDE) [Concomitant]
  7. ACETYLSALICYLIC ACID [Concomitant]
     Active Substance: ASPIRIN
  8. CALCIUM [Concomitant]
     Active Substance: CALCIUM
  9. NIACIN (NICOTINIC ACID) [Concomitant]

REACTIONS (19)
  - Oropharyngeal pain [None]
  - Renal artery stenosis [None]
  - Renal tubular necrosis [None]
  - Renal cyst [None]
  - Hypokalaemia [None]
  - Dehydration [None]
  - Hypovolaemia [None]
  - Decreased appetite [None]
  - Gastritis [None]
  - Nephropathy [None]
  - Dysgeusia [None]
  - Renal failure acute [None]
  - Eructation [None]
  - Hypotension [None]
  - Nephrosclerosis [None]
  - Nausea [None]
  - Gastrooesophageal reflux disease [None]
  - Renal failure chronic [None]
  - Anaemia [None]

NARRATIVE: CASE EVENT DATE: 20030806
